FAERS Safety Report 7460920-0 (Version None)
Quarter: 2011Q2

REPORT INFORMATION
  Report Type: 
  Country: None (occurrence: None)
  Receive Date: 20110505
  Receipt Date: 20110428
  Transmission Date: 20111010
  Serious: Yes (Other)
  Sender: FDA-Public Use
  Company Number: US-PFIZER INC-2011082650

PATIENT
  Sex: Female
  Weight: 62.13 kg

DRUGS (3)
  1. TRAMADOL HYDROCHLORIDE [Interacting]
     Indication: SCIATICA
     Dosage: UNK
     Dates: start: 20100101
  2. LEVOTHYROXINE [Concomitant]
     Indication: THYROID DISORDER
     Dosage: 25 MG, 1X/DAY
     Route: 048
  3. PRISTIQ [Suspect]
     Indication: DEPRESSION
     Dosage: 50 MG, 1X/DAY
     Route: 048
     Dates: start: 20080101, end: 20110301

REACTIONS (5)
  - NEUROLEPTIC MALIGNANT SYNDROME [None]
  - SEROTONIN SYNDROME [None]
  - MYOCARDIAL INFARCTION [None]
  - DRUG INTERACTION [None]
  - AMNESIA [None]
